FAERS Safety Report 24050944 (Version 1)
Quarter: 2024Q3

REPORT INFORMATION
  Report Type: Report from Study
  Country: KR (occurrence: KR)
  Receive Date: 20240704
  Receipt Date: 20240704
  Transmission Date: 20241017
  Serious: Yes (Hospitalization, Other)
  Sender: TAKEDA
  Company Number: KR-TAKEDA-2024TUS064591

PATIENT
  Age: 46 Year
  Sex: Male
  Weight: 98 kg

DRUGS (28)
  1. VEDOLIZUMAB [Suspect]
     Active Substance: VEDOLIZUMAB
     Indication: Crohn^s disease
     Dosage: 300 MILLIGRAM
     Route: 042
     Dates: start: 20240612
  2. Duoclin [Concomitant]
     Dosage: 7.5 MILLILITER, BID
     Route: 026
     Dates: start: 20240612, end: 20240617
  3. Tretin [Concomitant]
     Dosage: 10 MILLILITER, QD
     Route: 048
     Dates: start: 20240612, end: 20240617
  4. MONTERIZINE [Concomitant]
     Dosage: UNK UNK, QD
     Route: 048
     Dates: start: 20240612, end: 20240617
  5. SERTACONAZOLE NITRATE [Concomitant]
     Active Substance: SERTACONAZOLE NITRATE
     Dosage: 15 MILLIGRAM, BID
     Route: 026
     Dates: start: 20240612, end: 20240617
  6. DESOWEN [Concomitant]
     Active Substance: DESONIDE
     Dosage: 120 MILLILITER
     Route: 026
     Dates: start: 20240612, end: 20240623
  7. CORFORGE [Concomitant]
     Dosage: UNK UNK, QD
     Route: 048
     Dates: start: 20230208, end: 20240617
  8. FERROUS SULFATE\PROTEASE [Concomitant]
     Active Substance: FERROUS SULFATE\PROTEASE
     Dosage: UNK UNK, BID
     Route: 048
     Dates: start: 20230208, end: 20240617
  9. Dong a perdipine [Concomitant]
     Dosage: 30 MILLIGRAM, QD
     Route: 042
     Dates: start: 20240618, end: 20240619
  10. AMINO ACIDS\DEXTROSE\ELECTROLYTES NOS\SOYBEAN OIL [Concomitant]
     Active Substance: AMINO ACIDS\DEXTROSE\ELECTROLYTES NOS\SOYBEAN OIL
     Indication: Nutritional supplementation
     Dosage: 1448 MILLIGRAM
     Route: 042
     Dates: start: 20240618, end: 20240619
  11. AMINO ACIDS\DEXTROSE\ELECTROLYTES NOS\SOYBEAN OIL [Concomitant]
     Active Substance: AMINO ACIDS\DEXTROSE\ELECTROLYTES NOS\SOYBEAN OIL
     Dosage: 1448 MILLIGRAM
     Route: 042
     Dates: start: 20240624
  12. PENIRAMIN [Concomitant]
     Dosage: UNK UNK, QD
     Route: 042
     Dates: start: 20240618, end: 20240618
  13. HARMONILAN [Concomitant]
     Dosage: 200 MILLILITER, TID
     Route: 048
     Dates: start: 20240619, end: 20240623
  14. CALCIUM CARBONATE\CHOLECALCIFEROL [Concomitant]
     Active Substance: CALCIUM CARBONATE\CHOLECALCIFEROL
     Dosage: UNK UNK, QD
     Route: 048
     Dates: start: 20240619, end: 20240623
  15. NEXIUM [Concomitant]
     Active Substance: ESOMEPRAZOLE MAGNESIUM
     Dosage: UNK UNK, QD
     Route: 042
     Dates: start: 20240619, end: 20240619
  16. Esomezol [Concomitant]
     Dosage: 20 MILLIGRAM, QD
     Route: 048
     Dates: start: 20240619, end: 20240623
  17. Feroba you sr [Concomitant]
     Dosage: UNK UNK, BID
     Route: 048
     Dates: start: 20240620, end: 20240623
  18. HUMIRA [Concomitant]
     Active Substance: ADALIMUMAB
     Dosage: 160 MILLIGRAM
     Route: 058
     Dates: start: 20141121, end: 20141121
  19. HUMIRA [Concomitant]
     Active Substance: ADALIMUMAB
     Dosage: 80 MILLIGRAM
     Route: 058
     Dates: start: 20141209, end: 20141209
  20. HUMIRA [Concomitant]
     Active Substance: ADALIMUMAB
     Dosage: 40 MILLIGRAM, Q2WEEKS
     Route: 058
     Dates: start: 20141223, end: 20170106
  21. INFLIXIMAB [Concomitant]
     Active Substance: INFLIXIMAB
     Dosage: 1000 MILLIGRAM
     Route: 042
     Dates: start: 20170318, end: 20220914
  22. INFLIXIMAB [Concomitant]
     Active Substance: INFLIXIMAB
     Dosage: 120 MILLIGRAM, Q2WEEKS
     Route: 058
     Dates: start: 20230111, end: 20230125
  23. STELARA [Concomitant]
     Active Substance: USTEKINUMAB
     Dosage: 520 MILLIGRAM
     Route: 042
     Dates: start: 20230222, end: 20230222
  24. STELARA [Concomitant]
     Active Substance: USTEKINUMAB
     Dosage: 90 MILLIGRAM
     Route: 058
     Dates: start: 20230419, end: 20230419
  25. STELARA [Concomitant]
     Active Substance: USTEKINUMAB
     Dosage: 90 MILLIGRAM
     Route: 058
     Dates: start: 20230802, end: 20240313
  26. RINVOQ [Concomitant]
     Active Substance: UPADACITINIB
     Dosage: 30 MILLIGRAM, QD
     Route: 048
     Dates: start: 20240508, end: 20240604
  27. RINVOQ [Concomitant]
     Active Substance: UPADACITINIB
     Dosage: 15 MILLIGRAM, QD
     Route: 048
     Dates: start: 20240508, end: 20240604
  28. PREDNISOLONE [Concomitant]
     Active Substance: PREDNISOLONE
     Indication: Abdominal pain
     Dosage: 30 MILLIGRAM, QD
     Route: 048
     Dates: start: 20240619, end: 20240623

REACTIONS (1)
  - Crohn^s disease [Recovered/Resolved]

NARRATIVE: CASE EVENT DATE: 20240624
